FAERS Safety Report 9103138 (Version 1)
Quarter: 2013Q1

REPORT INFORMATION
  Report Type: Spontaneous
  Country: JP (occurrence: JP)
  Receive Date: 20130219
  Receipt Date: 20130219
  Transmission Date: 20140127
  Serious: Yes (Hospitalization)
  Sender: FDA-Public Use
  Company Number: PHHY2013JP007829

PATIENT
  Age: 88 Year
  Sex: Female

DRUGS (4)
  1. RITALIN [Suspect]
     Indication: DEPRESSION
     Dosage: 20 MG, (ONE TABLET IN THE MORNING AND ONE TABLET IN THE DAYTIME) BID
     Route: 048
  2. DOGMATYL [Concomitant]
     Dosage: UNK UKN, UNK
  3. LEXAPRO [Concomitant]
     Route: 048
  4. RILYFTER [Concomitant]
     Route: 048

REACTIONS (2)
  - Fall [Not Recovered/Not Resolved]
  - Fracture [Not Recovered/Not Resolved]
